FAERS Safety Report 22022289 (Version 1)
Quarter: 2023Q1

REPORT INFORMATION
  Report Type: Spontaneous
  Country: US (occurrence: US)
  Receive Date: 20230222
  Receipt Date: 20230222
  Transmission Date: 20230418
  Serious: Yes (Other)
  Sender: FDA-Public Use
  Company Number: US-PFIZER INC-202300074214

PATIENT
  Age: 63 Year
  Sex: Female
  Weight: 64.41 kg

DRUGS (7)
  1. PAXLOVID [Suspect]
     Active Substance: NIRMATRELVIR\RITONAVIR
     Indication: COVID-19 treatment
     Dosage: 3 DF, 2X/DAY (3 TABLETS BY MOUTH EVERY 12 HOURS)
     Route: 048
     Dates: start: 20230214, end: 20230217
  2. AZITHROMYCIN [Suspect]
     Active Substance: AZITHROMYCIN
     Indication: Diabetes mellitus
     Dosage: 2 DF, 2X/DAY (2 TABLETS TWICE A DAY)
     Route: 048
     Dates: start: 20230214, end: 20230216
  3. AZITHROMYCIN [Suspect]
     Active Substance: AZITHROMYCIN
     Indication: Hypertension
  4. AZITHROMYCIN [Suspect]
     Active Substance: AZITHROMYCIN
     Indication: COVID-19 treatment
  5. DEXAMETHASONE [Suspect]
     Active Substance: DEXAMETHASONE
     Indication: Diabetes mellitus
     Dosage: 6 MG, 1X/DAY (6MG TABLET ONCE A DAY)
     Route: 048
     Dates: start: 20230214, end: 20230216
  6. DEXAMETHASONE [Suspect]
     Active Substance: DEXAMETHASONE
     Indication: Hypertension
  7. DEXAMETHASONE [Suspect]
     Active Substance: DEXAMETHASONE
     Indication: COVID-19 treatment

REACTIONS (2)
  - Hypertension [Not Recovered/Not Resolved]
  - Blood glucose increased [Not Recovered/Not Resolved]

NARRATIVE: CASE EVENT DATE: 20230214
